FAERS Safety Report 6028617-1 (Version None)
Quarter: 2009Q1

REPORT INFORMATION
  Report Type: 
  Country: None (occurrence: None)
  Receive Date: 20090106
  Receipt Date: 20081226
  Transmission Date: 20090719
  Serious: Yes (Other)
  Sender: FDA-Public Use
  Company Number: ES-PFIZER INC-2008095342

PATIENT

DRUGS (1)
  1. NEURONTIN [Suspect]
     Route: 048
     Dates: end: 20080101

REACTIONS (1)
  - ARRHYTHMIA [None]
